FAERS Safety Report 4636707-0 (Version None)
Quarter: 2005Q2

REPORT INFORMATION
  Report Type: 
  Country: None (occurrence: None)
  Receive Date: 20050414
  Receipt Date: 20050401
  Transmission Date: 20051028
  Serious: Yes (Other)
  Sender: FDA-Public Use
  Company Number: 2005053707

PATIENT
  Sex: 0

DRUGS (1)
  1. CELEBREX [Suspect]
     Indication: ILL-DEFINED DISORDER

REACTIONS (5)
  - DIZZINESS [None]
  - ERYTHEMA [None]
  - OEDEMA [None]
  - SKIN DISCOLOURATION [None]
  - SKIN REACTION [None]
